FAERS Safety Report 8266269-0 (Version None)
Quarter: 2012Q2

REPORT INFORMATION
  Report Type: 
  Country: None (occurrence: None)
  Receive Date: 20120406
  Receipt Date: 20110824
  Transmission Date: 20120825
  Serious: Yes (Death, Hospitalization)
  Sender: FDA-Public Use
  Company Number: JP-JNJFOC-20110102047

PATIENT
  Age: 48 Year
  Sex: Female
  Weight: 43 kg

DRUGS (197)
  1. COTRIM [Suspect]
     Indication: PRODUCT USED FOR UNKNOWN INDICATION
     Dosage: 6 TABS
     Route: 048
     Dates: start: 20101025, end: 20101111
  2. LASIX [Suspect]
     Route: 048
     Dates: start: 20101215, end: 20101216
  3. RABEPRAZOLE SODIUM [Suspect]
     Route: 048
     Dates: start: 20101028, end: 20101028
  4. URSO 250 [Concomitant]
     Indication: HEPATITIS C
     Route: 048
     Dates: start: 20101029, end: 20101122
  5. DEPAS [Concomitant]
     Route: 048
     Dates: start: 20100915, end: 20101122
  6. DEPAS [Concomitant]
     Route: 048
     Dates: start: 20100901, end: 20100913
  7. HEPAFLUSH [Concomitant]
     Dates: start: 20101118, end: 20101124
  8. HEPAFLUSH [Concomitant]
     Dates: start: 20101001, end: 20101012
  9. ISOTONIC SODIUM CHLORIDE [Concomitant]
     Route: 042
     Dates: start: 20100928, end: 20100928
  10. ISOTONIC SODIUM CHLORIDE [Concomitant]
     Route: 042
     Dates: start: 20101001, end: 20110103
  11. ISOTONIC SODIUM CHLORIDE [Concomitant]
     Route: 042
     Dates: start: 20100821, end: 20100827
  12. DISTILLED WATER [Concomitant]
     Dates: start: 20100928, end: 20100928
  13. NEO-MINOPHAGEN C [Concomitant]
     Dates: start: 20100928, end: 20100928
  14. NEO-MINOPHAGEN C [Concomitant]
     Dates: start: 20100914, end: 20100914
  15. FUNGIZONE [Concomitant]
     Route: 048
     Dates: start: 20101116, end: 20101122
  16. VITAMEDIN [Concomitant]
     Dates: start: 20101023, end: 20101029
  17. ATARAX [Concomitant]
     Dates: start: 20110101, end: 20110103
  18. PREDNISOLONE [Concomitant]
     Route: 048
     Dates: start: 20101109, end: 20101116
  19. LEVOTHYROXINE SODIUM [Concomitant]
     Dosage: DOSE: 25DF
     Route: 048
     Dates: start: 20101106, end: 20101126
  20. MAINTENANCE MEDIUM WITH GLUCOSE [Concomitant]
     Dosage: DOSE: 500DF
     Dates: start: 20101201, end: 20101204
  21. TPN ELECTROLYTES IN PLASTIC CONTAINER [Concomitant]
     Dates: start: 20110102, end: 20110103
  22. PENTAMIDINE ISETHIONATE [Concomitant]
     Dates: start: 20101222, end: 20101224
  23. COAHIBITOR [Concomitant]
     Dates: start: 20101231, end: 20110103
  24. CEFOTIAM HYDROCHLORIDE [Concomitant]
     Dates: end: 20101006
  25. COTRIM [Suspect]
     Dosage: 9 TABS
     Route: 048
     Dates: start: 20101022, end: 20101025
  26. LASIX [Suspect]
     Route: 048
     Dates: start: 20101026, end: 20101027
  27. MEROPENEM [Suspect]
     Indication: PRODUCT USED FOR UNKNOWN INDICATION
     Dates: start: 20101027, end: 20101105
  28. ALDACTONE [Suspect]
     Route: 048
     Dates: start: 20101112, end: 20101114
  29. ALDACTONE [Suspect]
     Route: 048
     Dates: start: 20101115, end: 20101115
  30. SELBEX [Concomitant]
     Indication: PROPHYLAXIS
     Route: 048
     Dates: start: 20100928, end: 20101025
  31. DEPAS [Concomitant]
     Indication: INSOMNIA
     Route: 048
     Dates: start: 20100914, end: 20100914
  32. ISOTONIC SODIUM CHLORIDE [Concomitant]
     Route: 042
     Dates: start: 20100817, end: 20100817
  33. DISTILLED WATER [Concomitant]
     Dates: start: 20100831, end: 20100831
  34. NEO-MINOPHAGEN C [Concomitant]
     Dates: start: 20100831, end: 20100831
  35. NEO-MINOPHAGEN C [Concomitant]
     Dates: start: 20101018
  36. DOVONEX [Concomitant]
     Route: 061
     Dates: start: 20101008, end: 20101008
  37. VEEN-D [Concomitant]
     Dates: start: 20101025, end: 20101025
  38. SOLITA-T NO.4 [Concomitant]
     Dates: start: 20101026, end: 20101104
  39. SOLDEM 1 [Concomitant]
     Dates: start: 20101221, end: 20101223
  40. SOLDEM 1 [Concomitant]
     Dates: start: 20101119, end: 20101120
  41. DEXTROSE [Concomitant]
     Dates: start: 20101119, end: 20110103
  42. LAC-B [Concomitant]
     Route: 048
     Dates: start: 20101201, end: 20101207
  43. LIDOMEX [Concomitant]
     Route: 061
     Dates: start: 20101203, end: 20101212
  44. INTAL [Concomitant]
     Route: 055
     Dates: start: 20101222, end: 20101228
  45. PROPOFOL [Concomitant]
     Dates: start: 20110103, end: 20110103
  46. VOLTAREN [Concomitant]
     Indication: ANTIPYRESIS
     Route: 054
     Dates: start: 20100823, end: 20100823
  47. ISODINE GARGLE [Concomitant]
     Dates: start: 20101116, end: 20101116
  48. PREDNISOLONE [Suspect]
     Route: 048
     Dates: start: 20100901, end: 20100907
  49. COTRIM [Suspect]
     Dosage: 2 TABS
     Route: 048
     Dates: start: 20101118, end: 20101119
  50. ALBUMIN (HUMAN) [Suspect]
     Dates: start: 20101231, end: 20101231
  51. RABEPRAZOLE SODIUM [Suspect]
     Route: 048
     Dates: start: 20101027, end: 20101027
  52. ALDACTONE [Suspect]
     Indication: PRODUCT USED FOR UNKNOWN INDICATION
     Route: 048
     Dates: start: 20101102, end: 20101106
  53. ALDACTONE [Suspect]
     Route: 048
     Dates: start: 20101026, end: 20101101
  54. ALDACTONE [Suspect]
     Route: 048
     Dates: start: 20101116, end: 20101122
  55. HEPAFLUSH [Concomitant]
     Dates: start: 20101221, end: 20110103
  56. HEPAFLUSH [Concomitant]
     Dates: start: 20100821, end: 20100822
  57. NEO-MINOPHAGEN C [Concomitant]
     Dates: start: 20100817, end: 20100817
  58. FUNGIZONE [Concomitant]
     Route: 048
     Dates: start: 20100926, end: 20100927
  59. LIDEX CREAM [Concomitant]
  60. GLYCERINE [Concomitant]
     Route: 054
     Dates: start: 20101022, end: 20101022
  61. VEEN-F [Concomitant]
     Dates: start: 20101023, end: 20101025
  62. VEEN-F [Concomitant]
     Dates: start: 20110102, end: 20110102
  63. VITAMEDIN [Concomitant]
     Dates: start: 20110102, end: 20110103
  64. PREDNISOLONE [Concomitant]
     Route: 048
     Dates: start: 20101224, end: 20110103
  65. SODIUM CHLORIDE 10% [Concomitant]
     Route: 042
     Dates: start: 20101102, end: 20101102
  66. POLAPREZINC [Concomitant]
     Route: 048
     Dates: start: 20101112, end: 20101122
  67. SOLDEM 1 [Concomitant]
     Dates: start: 20100101, end: 20110103
  68. DEXALTIN [Concomitant]
     Route: 061
     Dates: start: 20101201, end: 20101201
  69. LIDOMEX [Concomitant]
     Route: 061
     Dates: start: 20101209, end: 20101209
  70. SLOW-K [Concomitant]
     Route: 048
     Dates: start: 20101213, end: 20101222
  71. MEPTIN [Concomitant]
     Route: 055
     Dates: start: 20101222, end: 20101228
  72. CLINDAMYCIN [Concomitant]
     Dates: start: 20110102, end: 20110103
  73. INTRAVENOUS HYPERALIMENTATION [Concomitant]
     Dosage: DOSE: 500DF
     Dates: start: 20110102, end: 20110103
  74. ELEMENMIC [Concomitant]
     Dates: start: 20110102, end: 20110103
  75. INOVAN [Concomitant]
     Dates: start: 20110103, end: 20110103
  76. SULFASALAZINE [Concomitant]
     Dates: start: 20091027
  77. REMICADE [Suspect]
     Indication: PSORIATIC ARTHROPATHY
     Route: 042
     Dates: start: 20100817
  78. REMICADE [Suspect]
     Dosage: 3RD DOSE
     Route: 042
     Dates: start: 20100928
  79. PREDNISOLONE [Suspect]
     Indication: PSORIATIC ARTHROPATHY
     Route: 048
  80. LASIX [Suspect]
     Route: 048
     Dates: start: 20101117, end: 20101122
  81. ALBUMIN (HUMAN) [Suspect]
     Dates: start: 20101202, end: 20101204
  82. ALBUMIN (HUMAN) [Suspect]
     Dates: start: 20101119, end: 20101124
  83. RABEPRAZOLE SODIUM [Suspect]
     Route: 048
     Dates: start: 20101102, end: 20101106
  84. ROCEPHIN [Suspect]
     Indication: PRODUCT USED FOR UNKNOWN INDICATION
     Dates: start: 20101118, end: 20101122
  85. URSO 250 [Concomitant]
     Route: 048
     Dates: start: 20100914, end: 20101018
  86. ANTEBATE [Concomitant]
     Indication: PSORIATIC ARTHROPATHY
     Route: 061
  87. HEPAFLUSH [Concomitant]
     Dates: start: 20100824, end: 20100825
  88. NEO-MINOPHAGEN C [Concomitant]
     Dates: start: 20100928, end: 20100928
  89. NEO-MINOPHAGEN C [Concomitant]
     Dates: start: 20100819, end: 20100819
  90. FUNGIZONE [Concomitant]
     Route: 048
     Dates: start: 20100930, end: 20101018
  91. FUNGIZONE [Concomitant]
     Route: 048
     Dates: start: 20101103, end: 20101109
  92. NON-PYRINE COLD PREPARATION [Concomitant]
     Route: 048
     Dates: start: 20100926, end: 20100929
  93. LACTATED RINGER'S [Concomitant]
     Dosage: DOSE = 500 DF
     Dates: start: 20101022, end: 20101022
  94. METHYLPREDNISOLONE SODIUM SUCCINATE [Concomitant]
     Dates: start: 20101221, end: 20101223
  95. METHYLPREDNISOLONE SODIUM SUCCINATE [Concomitant]
     Dates: start: 20101022, end: 20101024
  96. PREDNISOLONE [Concomitant]
     Route: 048
     Dates: start: 20101116, end: 20101201
  97. IMMUNE GLOBULIN (HUMAN) [Concomitant]
     Dates: start: 20101119, end: 20101121
  98. ACETAMINOPHEN [Concomitant]
     Indication: ANTIPYRESIS
     Dosage: 200DF
     Route: 048
     Dates: start: 20101119, end: 20101123
  99. ALLOID G [Concomitant]
     Route: 048
     Dates: start: 20101124, end: 20101130
  100. TORSEMIDE [Concomitant]
     Route: 048
     Dates: start: 20101216
  101. LOXONIN [Concomitant]
     Indication: PAIN PROPHYLAXIS
     Dosage: DOSE: 60DF
     Route: 048
     Dates: start: 20101230, end: 20110103
  102. SODIUM BICARBONATE [Concomitant]
     Dates: start: 20110102, end: 20110102
  103. VANCOMYCIN [Concomitant]
     Dates: start: 20110102, end: 20110103
  104. DOBUTAMINE HCL [Concomitant]
     Dates: start: 20110103, end: 20110103
  105. VOLTAREN [Concomitant]
     Route: 054
     Dates: start: 20101119, end: 20101120
  106. COTRIM [Suspect]
     Dosage: 2 TABS
     Route: 048
     Dates: start: 20101122, end: 20101123
  107. COTRIM [Suspect]
     Dosage: 6 TABS
     Route: 048
     Dates: start: 20101102, end: 20101115
  108. ALBUMIN (HUMAN) [Suspect]
     Dates: start: 20110102, end: 20110102
  109. RABEPRAZOLE SODIUM [Suspect]
     Indication: PRODUCT USED FOR UNKNOWN INDICATION
     Route: 048
     Dates: start: 20101029, end: 20101031
  110. RABEPRAZOLE SODIUM [Suspect]
     Route: 048
     Dates: start: 20101026, end: 20101026
  111. ROCEPHIN [Suspect]
     Dates: start: 20101118, end: 20101119
  112. HEPAFLUSH [Concomitant]
     Dates: start: 20100827, end: 20100827
  113. HEPAFLUSH [Concomitant]
     Dates: start: 20101201, end: 20101216
  114. NEO-MINOPHAGEN C [Concomitant]
     Dates: end: 20101012
  115. HEPARIN [Concomitant]
     Route: 061
     Dates: start: 20101015, end: 20101201
  116. METHYLPREDNISOLONE SODIUM SUCCINATE [Concomitant]
     Dates: start: 20110101, end: 20110103
  117. PREDNISOLONE [Concomitant]
     Route: 048
     Dates: start: 20101201, end: 20101224
  118. MUCOSTA [Concomitant]
     Route: 048
     Dates: start: 20101026, end: 20101122
  119. IMMUNE GLOBULIN (HUMAN) [Concomitant]
     Dates: start: 20101028, end: 20101030
  120. FAMOTIDINE [Concomitant]
     Route: 048
     Dates: start: 20101106
  121. ACETAMINOPHEN [Concomitant]
     Dosage: 200DF
     Route: 048
     Dates: start: 20101230, end: 20110101
  122. POTASSIUM CHLORIDE [Concomitant]
     Dates: start: 20101201, end: 20101206
  123. HEPARIN SODIUM [Concomitant]
     Dates: start: 20110102, end: 20110102
  124. ISODINE GARGLE [Concomitant]
     Dates: start: 20100901, end: 20100901
  125. ISODINE GARGLE [Concomitant]
     Dates: start: 20100928, end: 20100928
  126. CEFOTIAM HYDROCHLORIDE [Concomitant]
     Dates: start: 20100821, end: 20100827
  127. SULFASALAZINE [Concomitant]
     Dates: start: 20090201
  128. PREDNISOLONE [Suspect]
     Route: 048
     Dates: start: 20100914, end: 20110103
  129. LASIX [Suspect]
     Route: 048
     Dates: start: 20101029, end: 20101031
  130. ALBUMIN (HUMAN) [Suspect]
     Indication: PRODUCT USED FOR UNKNOWN INDICATION
     Dates: start: 20101102, end: 20101106
  131. FIRSTCIN [Suspect]
     Dates: start: 20101118, end: 20101118
  132. URSO 250 [Concomitant]
     Route: 048
     Dates: start: 20101221, end: 20110103
  133. CLOBETASOL PROPIONATE [Concomitant]
     Indication: PSORIATIC ARTHROPATHY
     Route: 061
  134. HYDROCORTISONE BUTYRATE [Concomitant]
     Indication: PSORIATIC ARTHROPATHY
     Route: 061
  135. SELBEX [Concomitant]
     Route: 048
     Dates: start: 20101121, end: 20110103
  136. ISOTONIC SODIUM CHLORIDE [Concomitant]
     Route: 042
     Dates: start: 20100831, end: 20100831
  137. NEO-MINOPHAGEN C [Concomitant]
     Dates: start: 20100826, end: 20100826
  138. LEVOFLOXACIN [Concomitant]
     Route: 048
     Dates: start: 20100827, end: 20100830
  139. DOVONEX [Concomitant]
     Route: 061
     Dates: start: 20100926, end: 20100926
  140. FUNGIZONE [Concomitant]
     Route: 048
     Dates: start: 20100928, end: 20100929
  141. HYALEIN [Concomitant]
     Route: 031
     Dates: start: 20101008, end: 20101008
  142. PRIMPERAN TAB [Concomitant]
     Dates: start: 20101024, end: 20101024
  143. FERRO-GRADUMET [Concomitant]
     Route: 048
     Dates: start: 20101105, end: 20101110
  144. HUMALOG [Concomitant]
     Dates: start: 20101220, end: 20101220
  145. LIDOMEX [Concomitant]
     Route: 061
     Dates: start: 20101008, end: 20101008
  146. GARENOXACIN MESYLATE [Concomitant]
     Route: 048
     Dates: start: 20101216
  147. ANTEBATE [Concomitant]
     Dosage: START DATE REPORTED AS PRIOR TO INITIATION OF INFLIXIMAB
     Route: 061
  148. CLOBETASOL PROPIONATE [Concomitant]
     Dosage: START DATE REPORTED AS PRIOR TO INITIATION OF INFLIXIMAB
     Route: 061
  149. CIPRO [Concomitant]
     Dates: end: 20101216
  150. OLMESARTAN MEDOXOMIL [Concomitant]
     Indication: HYPERTENSION
     Route: 048
     Dates: start: 20100901, end: 20100907
  151. TRH [Concomitant]
     Route: 042
     Dates: start: 20101115, end: 20101115
  152. REMICADE [Suspect]
     Route: 042
     Dates: start: 20100831
  153. COTRIM [Suspect]
     Dosage: 6 TABS
     Route: 048
     Dates: start: 20101029, end: 20101031
  154. LASIX [Suspect]
     Indication: PRODUCT USED FOR UNKNOWN INDICATION
     Route: 048
     Dates: start: 20101028, end: 20101028
  155. LASIX [Suspect]
     Route: 048
     Dates: start: 20101102, end: 20101106
  156. LASIX [Suspect]
     Route: 048
     Dates: start: 20101125, end: 20101125
  157. RABEPRAZOLE SODIUM [Suspect]
     Route: 048
     Dates: start: 20101023, end: 20101025
  158. URSO 250 [Concomitant]
     Route: 048
     Dates: start: 20100817, end: 20100906
  159. OXAROL [Concomitant]
     Indication: PSORIATIC ARTHROPATHY
     Route: 061
  160. HEPAFLUSH [Concomitant]
     Dates: start: 20100823, end: 20100823
  161. HEPAFLUSH [Concomitant]
     Dates: start: 20100817, end: 20100817
  162. DISTILLED WATER [Concomitant]
     Dates: start: 20101122, end: 20101124
  163. LAMISIL [Concomitant]
     Route: 061
     Dates: start: 20100818, end: 20100818
  164. LEVOFLOXACIN [Concomitant]
     Route: 048
     Dates: start: 20101222, end: 20110103
  165. DOVONEX [Concomitant]
     Route: 061
     Dates: start: 20100901, end: 20100901
  166. PROPETO [Concomitant]
     Route: 061
     Dates: start: 20101023, end: 20101129
  167. PENTAZOCINE LACTATE [Concomitant]
     Route: 030
     Dates: start: 20101024, end: 20101024
  168. ATARAX [Concomitant]
     Dates: start: 20101231, end: 20110103
  169. POLAPREZINC [Concomitant]
     Dosage: DOSE: 150DF A DAY
     Route: 048
     Dates: start: 20101105, end: 20101110
  170. HUMALOG [Concomitant]
     Dates: start: 20101119, end: 20101119
  171. ETOPOSIDE [Concomitant]
     Dates: start: 20110102, end: 20110102
  172. CALCIUM CARBONATE [Concomitant]
     Dates: start: 20110102, end: 20110102
  173. CIPRO [Concomitant]
     Dates: end: 20101027
  174. ISODINE GARGLE [Concomitant]
     Dosage: ROUTE: OR
     Dates: start: 20100827, end: 20100827
  175. CEFOPERAZONE SODIUM [Concomitant]
     Dates: start: 20101006, end: 20101012
  176. OLOPATADINE HCL [Concomitant]
     Route: 048
     Dates: start: 20100830, end: 20100830
  177. FIRSTCIN [Suspect]
     Indication: PRODUCT USED FOR UNKNOWN INDICATION
     Dates: start: 20101105, end: 20101110
  178. FIRSTCIN [Suspect]
     Dates: start: 20101119, end: 20101119
  179. DEPAS [Concomitant]
     Route: 048
     Dates: start: 20101215, end: 20101225
  180. HEPAFLUSH [Concomitant]
     Dates: start: 20101022, end: 20101111
  181. HEPAFLUSH [Concomitant]
     Dates: start: 20100826, end: 20100826
  182. DISTILLED WATER [Concomitant]
     Dates: start: 20101102, end: 20101102
  183. DISTILLED WATER [Concomitant]
     Dosage: ALL REPORTED AS 20 DF
     Dates: start: 20100817, end: 20100827
  184. NEO-MINOPHAGEN C [Concomitant]
     Dates: start: 20100823, end: 20100823
  185. DOVONEX [Concomitant]
     Route: 061
     Dates: start: 20100928, end: 20100928
  186. LACTATED RINGER'S [Concomitant]
     Dates: start: 20110102, end: 20110102
  187. PENTAZOCINE LACTATE [Concomitant]
     Route: 030
     Dates: start: 20101231, end: 20110103
  188. ATARAX [Concomitant]
     Dates: start: 20101024, end: 20101025
  189. ATROPINE SULFATE [Concomitant]
     Route: 030
     Dates: start: 20101025, end: 20101025
  190. PREDNISOLONE [Concomitant]
     Route: 048
     Dates: start: 20101025, end: 20101109
  191. FERRO-GRADUMET [Concomitant]
     Route: 048
     Dates: start: 20101112, end: 20101122
  192. ALLOID G [Concomitant]
     Route: 048
     Dates: start: 20101230, end: 20110103
  193. TPN ELECTROLYTES IN PLASTIC CONTAINER [Concomitant]
     Dates: start: 20101201, end: 20101206
  194. ALINAMIN F [Concomitant]
     Dates: start: 20110102, end: 20110102
  195. LOCOID C [Concomitant]
     Indication: PSORIATIC ARTHROPATHY
     Route: 061
     Dates: start: 20101008, end: 20101008
  196. OLMESARTAN MEDOXOMIL [Concomitant]
     Route: 048
     Dates: start: 20100914, end: 20101018
  197. OLOPATADINE HCL [Concomitant]
     Route: 048
     Dates: start: 20100914, end: 20100915

REACTIONS (14)
  - CELLULITIS [None]
  - DRUG ERUPTION [None]
  - PYREXIA [None]
  - RENAL DISORDER [None]
  - BURSITIS [None]
  - MULTI-ORGAN FAILURE [None]
  - ASCITES [None]
  - PNEUMOCYSTIS JIROVECI PNEUMONIA [None]
  - INFECTION [None]
  - HEPATITIS C [None]
  - ANAEMIA [None]
  - HISTIOCYTOSIS HAEMATOPHAGIC [None]
  - PLATELET COUNT DECREASED [None]
  - LIVER DISORDER [None]
